FAERS Safety Report 21468000 (Version 2)
Quarter: 2022Q4

REPORT INFORMATION
  Report Type: Spontaneous
  Country: US (occurrence: US)
  Receive Date: 20221017
  Receipt Date: 20221017
  Transmission Date: 20230113
  Serious: No
  Sender: FDA-Public Use
  Company Number: US-ALLERGAN-2211386US

PATIENT
  Sex: Female

DRUGS (2)
  1. LINZESS [Suspect]
     Active Substance: LINACLOTIDE
     Indication: Product used for unknown indication
     Dosage: 72 MCG CAPSULES TWICE DAILY FOR A PERIOD OF TIME
  2. LINZESS [Suspect]
     Active Substance: LINACLOTIDE
     Indication: Product used for unknown indication

REACTIONS (3)
  - Faeces hard [Unknown]
  - Abnormal faeces [Unknown]
  - Inappropriate schedule of product administration [Unknown]
